FAERS Safety Report 6499899-7 (Version None)
Quarter: 2009Q4

REPORT INFORMATION
  Report Type: 
  Country: None (occurrence: None)
  Receive Date: 20091214
  Receipt Date: 20091214
  Transmission Date: 20100525
  Serious: Yes (Hospitalization)
  Sender: FDA-Public Use
  Company Number: None

PATIENT
  Age: 53 Year
  Sex: Female

DRUGS (2)
  1. PACLITAXEL [Suspect]
     Indication: BREAST CANCER
     Dosage: 175 MG ONE TIME IV
     Route: 042
     Dates: start: 20090914, end: 20091130
  2. BEVACIZUMAB 25 MG/ML GENENTECH [Suspect]
     Indication: BREAST CANCER
     Dosage: 915 MG ONE TIME IV
     Route: 042
     Dates: start: 20090914, end: 20091012

REACTIONS (4)
  - BLISTER [None]
  - ERYTHEMA [None]
  - PAIN IN EXTREMITY [None]
  - PRURITUS [None]
